FAERS Safety Report 20771261 (Version 1)
Quarter: 2022Q2

REPORT INFORMATION
  Report Type: Spontaneous
  Country: FI (occurrence: FI)
  Receive Date: 20220429
  Receipt Date: 20220429
  Transmission Date: 20220721
  Serious: Yes (Other)
  Sender: FDA-Public Use
  Company Number: FI-Covis Pharma Europe B.V.-2022COV01247

PATIENT
  Age: 58 Year
  Sex: Male

DRUGS (1)
  1. CICLESONIDE [Suspect]
     Active Substance: CICLESONIDE
     Indication: Product used for unknown indication
     Route: 065

REACTIONS (2)
  - Testicular mass [Unknown]
  - Off label use [Unknown]
